FAERS Safety Report 16441817 (Version 1)
Quarter: 2019Q2

REPORT INFORMATION
  Report Type: Report from Study
  Country: US (occurrence: US)
  Receive Date: 20190617
  Receipt Date: 20190617
  Transmission Date: 20190711
  Serious: No
  Sender: FDA-Public Use
  Company Number: US-US WORLDMEDS, LLC-USW201807-001134

PATIENT
  Age: 67 Year
  Sex: Male
  Weight: 73.93 kg

DRUGS (7)
  1. RYTARY [Concomitant]
     Active Substance: CARBIDOPA\LEVODOPA
  2. BABY ASPIRIN [Concomitant]
     Active Substance: ASPIRIN
  3. APOKYN [Suspect]
     Active Substance: APOMORPHINE HYDROCHLORIDE
     Indication: PARKINSON^S DISEASE
     Route: 058
     Dates: start: 20180723
  4. NUPLAZID [Concomitant]
     Active Substance: PIMAVANSERIN TARTRATE
  5. TIGAN [Concomitant]
     Active Substance: TRIMETHOBENZAMIDE HYDROCHLORIDE
     Dates: start: 20180721
  6. RYTARY [Concomitant]
     Active Substance: CARBIDOPA\LEVODOPA
  7. RASAGILINE. [Concomitant]
     Active Substance: RASAGILINE

REACTIONS (3)
  - Blood pressure increased [Unknown]
  - Nausea [Unknown]
  - Blood pressure decreased [Unknown]

NARRATIVE: CASE EVENT DATE: 20180725
